FAERS Safety Report 13453508 (Version 1)
Quarter: 2017Q2

REPORT INFORMATION
  Report Type: Spontaneous
  Country: US (occurrence: US)
  Receive Date: 20170418
  Receipt Date: 20170418
  Transmission Date: 20170830
  Serious: No
  Sender: FDA-Public Use
  Company Number: US-ALLERGAN-1664381US

PATIENT
  Sex: Male
  Weight: 70.75 kg

DRUGS (5)
  1. SYNTHROID [Concomitant]
     Active Substance: LEVOTHYROXINE SODIUM
     Indication: HYPOTHYROIDISM
     Dosage: 88 MG, QD
     Route: 048
  2. LATISSE [Suspect]
     Active Substance: BIMATOPROST
     Indication: GROWTH OF EYELASHES
     Dosage: 2 GTT, QHS
     Route: 061
     Dates: start: 201605, end: 201609
  3. CYTOMEL [Suspect]
     Active Substance: LIOTHYRONINE SODIUM
     Indication: HYPOTHYROIDISM
     Dosage: UNK
     Route: 048
     Dates: end: 201609
  4. AMBIEN [Suspect]
     Active Substance: ZOLPIDEM TARTRATE
     Indication: SLEEP DISORDER
     Dosage: UNK
     Route: 048
     Dates: end: 201609
  5. LATISSE [Suspect]
     Active Substance: BIMATOPROST
     Indication: HAIR GROWTH ABNORMAL

REACTIONS (3)
  - Product use in unapproved indication [Unknown]
  - Heart rate irregular [Recovering/Resolving]
  - Madarosis [Not Recovered/Not Resolved]
